FAERS Safety Report 19651804 (Version 1)
Quarter: 2021Q3

REPORT INFORMATION
  Report Type: Spontaneous
  Country: US (occurrence: US)
  Receive Date: 20210803
  Receipt Date: 20210803
  Transmission Date: 20211014
  Serious: No
  Sender: FDA-Public Use
  Company Number: None

PATIENT
  Age: 56 Year
  Sex: Female
  Weight: 77.4 kg

DRUGS (16)
  1. GREEN TEA OIL [Concomitant]
  2. ATIVAN 0.5MG [Concomitant]
  3. ASHWAGANDHA 500MG [Concomitant]
  4. TAMOXIFEN 20MG [Concomitant]
     Active Substance: TAMOXIFEN
  5. PROBIOTIC [Concomitant]
     Active Substance: PROBIOTICS NOS
  6. OMEGA 3 COMPLEX [Concomitant]
  7. FLUTICASONE PROPIONATE 50MCG/ACT [Concomitant]
  8. IBRANCE [Suspect]
     Active Substance: PALBOCICLIB
     Indication: BREAST CANCER
     Dosage: ?          OTHER FREQUENCY:QD X 21/28 DAYS;?
     Route: 048
     Dates: start: 20201124
  9. ARMOUR THYROID 65MG [Concomitant]
  10. VENLAFAXINE ER 150MG [Concomitant]
     Active Substance: VENLAFAXINE HYDROCHLORIDE
  11. L?LYSINE 1000MG [Concomitant]
  12. HERBAL EXPEC 150MG/15ML [Concomitant]
  13. MONTELUKAST [Concomitant]
     Active Substance: MONTELUKAST SODIUM
  14. MULTIVITAMIN [Concomitant]
     Active Substance: VITAMINS
  15. TRAMADOL 50MG [Concomitant]
     Active Substance: TRAMADOL
  16. LEVOCETIRIZINE 5MG [Concomitant]
     Active Substance: LEVOCETIRIZINE

REACTIONS (1)
  - Rash [None]

NARRATIVE: CASE EVENT DATE: 20210803
